FAERS Safety Report 8346342-9 (Version None)
Quarter: 2012Q2

REPORT INFORMATION
  Report Type: 
  Country: None (occurrence: None)
  Receive Date: 20120509
  Receipt Date: 20120507
  Transmission Date: 20120825
  Serious: Yes (Hospitalization, Other)
  Sender: FDA-Public Use
  Company Number: US-PFIZER INC-2011249404

PATIENT
  Sex: Female
  Weight: 113 kg

DRUGS (6)
  1. CELEBREX [Suspect]
     Indication: ARTHRITIS
     Dosage: 200 MG, 2X/DAY
     Route: 048
     Dates: start: 20000101
  2. ASPIRIN [Concomitant]
     Indication: ANTICOAGULANT THERAPY
     Dosage: 81 MG, DAILY
  3. BENAZEPRIL [Concomitant]
     Dosage: 40 MG, DAILY
  4. NORVASC [Concomitant]
     Indication: HYPERTENSION
     Dosage: 40 MG, DAILY
  5. BETAPACE [Concomitant]
     Dosage: 120 MG, 2X/DAY
  6. POTASSIUM [Concomitant]
     Dosage: 10 MG,DAILY

REACTIONS (3)
  - CARDIAC FIBRILLATION [None]
  - HEART RATE ABNORMAL [None]
  - CHEST PAIN [None]
